FAERS Safety Report 24354937 (Version 2)
Quarter: 2024Q3

REPORT INFORMATION
  Report Type: Spontaneous
  Country: CN (occurrence: CN)
  Receive Date: 20240923
  Receipt Date: 20240927
  Transmission Date: 20241017
  Serious: Yes (Death, Other)
  Sender: BEIGENE
  Company Number: CN-BEIGENE-BGN-2024-015036

PATIENT

DRUGS (1)
  1. TISLELIZUMAB [Suspect]
     Active Substance: TISLELIZUMAB
     Indication: Cervix carcinoma
     Dosage: UNK
     Dates: start: 202407, end: 202408

REACTIONS (3)
  - Death [Fatal]
  - Myocardial injury [Unknown]
  - Atrial fibrillation [Unknown]
